FAERS Safety Report 8302900-9 (Version None)
Quarter: 2012Q2

REPORT INFORMATION
  Report Type: 
  Country: None (occurrence: None)
  Receive Date: 20120420
  Receipt Date: 20120413
  Transmission Date: 20120825
  Serious: Yes (Other)
  Sender: FDA-Public Use
  Company Number: DE-PFIZER INC-2012092377

PATIENT
  Age: 73 Year
  Sex: Male
  Weight: 89 kg

DRUGS (1)
  1. LYRICA [Suspect]
     Dosage: 200 MG, 2X/DAY
     Route: 048

REACTIONS (2)
  - BLOOD CREATINE ABNORMAL [None]
  - GLOMERULAR FILTRATION RATE ABNORMAL [None]
